FAERS Safety Report 18455623 (Version 3)
Quarter: 2020Q4

REPORT INFORMATION
  Report Type: Other
  Country: US (occurrence: US)
  Receive Date: 20201102
  Receipt Date: 20201210
  Transmission Date: 20210114
  Serious: Yes (Hospitalization)
  Sender: FDA-Public Use
  Company Number: US-ROCHE-2701491

PATIENT
  Age: 35 Year
  Sex: Male
  Weight: 52.1 kg

DRUGS (6)
  1. RISDIPLAM. [Suspect]
     Active Substance: RISDIPLAM
     Indication: SPINAL MUSCULAR ATROPHY
     Dosage: ON 21/OCT/2020, HE RECEIVED LAST DOSE OF RISDIPLAM PRIOR TO EVENT ONSET.
     Route: 048
     Dates: start: 20200722
  2. LIDOCAINE. [Concomitant]
     Active Substance: LIDOCAINE
     Indication: PAIN IN EXTREMITY
     Route: 062
     Dates: start: 20201124
  3. APIXABAN [Concomitant]
     Active Substance: APIXABAN
     Indication: DEEP VEIN THROMBOSIS
     Route: 048
     Dates: start: 20201124
  4. DIPHENHYDRAMINE. [Concomitant]
     Active Substance: DIPHENHYDRAMINE
     Indication: THROAT IRRITATION
     Route: 048
     Dates: start: 2019
  5. PYRIDOSTIGMINE [Concomitant]
     Active Substance: PYRIDOSTIGMINE
     Indication: SPINAL MUSCULAR ATROPHY
     Route: 048
     Dates: start: 20200416
  6. DICLOFENAC SODIUM. [Concomitant]
     Active Substance: DICLOFENAC SODIUM
     Indication: PAIN IN EXTREMITY
     Route: 061
     Dates: start: 20201124

REACTIONS (1)
  - Sepsis [Recovered/Resolved]

NARRATIVE: CASE EVENT DATE: 20201021
